FAERS Safety Report 8011040-8 (Version None)
Quarter: 2011Q4

REPORT INFORMATION
  Report Type: 
  Country: None (occurrence: None)
  Receive Date: 20111228
  Receipt Date: 20111216
  Transmission Date: 20120403
  Serious: Yes (Life-Threatening, Hospitalization)
  Sender: FDA-Public Use
  Company Number: GB-ELI_LILLY_AND_COMPANY-GB201112004714

PATIENT
  Age: 40 Year
  Sex: Male
  Weight: 78 kg

DRUGS (8)
  1. ACIDEX [Concomitant]
  2. ASPIRIN [Concomitant]
  3. EPROSARTAN [Concomitant]
  4. LANSOPRAZOLE [Concomitant]
  5. VARENICLINE TARTRATE [Concomitant]
     Indication: SMOKING CESSATION THERAPY
     Route: 048
  6. FLUOXETINE [Suspect]
     Indication: ANXIETY
     Dosage: 20 MG, UNK
     Route: 048
     Dates: start: 20111003
  7. DOXAZOSIN MESILATE [Concomitant]
  8. FELODIPINE [Concomitant]

REACTIONS (6)
  - PERIPHERAL ISCHAEMIA [None]
  - ISCHAEMIC NEPHROPATHY [None]
  - INTESTINAL ISCHAEMIA [None]
  - COAGULOPATHY [None]
  - AORTIC THROMBOSIS [None]
  - EMBOLISM [None]
